FAERS Safety Report 8811231 (Version 1)
Quarter: 2012Q4

REPORT INFORMATION
  Report Type: Spontaneous
  Country: US (occurrence: None)
  Receive Date: 20120924
  Receipt Date: 20120924
  Transmission Date: 20130627
  Serious: Yes (Hospitalization)
  Sender: FDA-Public Use
  Company Number: None

PATIENT
  Age: 65 Year
  Sex: Male
  Weight: 106.4 kg

DRUGS (3)
  1. DIVALPROEX SODIUM [Suspect]
     Indication: BIPOLAR II DISORDER
     Route: 048
     Dates: start: 20100820
  2. DIVALPROEX SODIUM [Suspect]
     Indication: DEPRESSED STATE
     Route: 048
     Dates: start: 20100820
  3. DICLOFENAC [Suspect]
     Route: 048
     Dates: start: 20120625, end: 20120702

REACTIONS (3)
  - Hyponatraemia [None]
  - Asthenia [None]
  - Fatigue [None]
